FAERS Safety Report 13776738 (Version 1)
Quarter: 2017Q3

REPORT INFORMATION
  Report Type: Spontaneous
  Country: US (occurrence: US)
  Receive Date: 20170721
  Receipt Date: 20170721
  Transmission Date: 20171127
  Serious: Yes (Hospitalization)
  Sender: FDA-Public Use
  Company Number: US-PFIZER INC-2017311181

PATIENT
  Age: 82 Year
  Sex: Female
  Weight: 64 kg

DRUGS (1)
  1. PREPARATION H SUPPOSITORY [Suspect]
     Active Substance: COCOA BUTTER\PHENYLEPHRINE HYDROCHLORIDE
     Indication: HAEMORRHOIDS
     Dosage: UNK

REACTIONS (3)
  - Haemorrhoidal haemorrhage [Not Recovered/Not Resolved]
  - Poor quality drug administered [Unknown]
  - Product quality issue [Unknown]
